FAERS Safety Report 7915267-2 (Version None)
Quarter: 2011Q4

REPORT INFORMATION
  Report Type: 
  Country: None (occurrence: None)
  Receive Date: 20111115
  Receipt Date: 20111109
  Transmission Date: 20120403
  Serious: Yes (Other)
  Sender: FDA-Public Use
  Company Number: JP-ABBOTT-11P-087-0853204-00

PATIENT
  Sex: Female
  Weight: 39 kg

DRUGS (5)
  1. HUMIRA [Suspect]
     Dates: start: 20110323
  2. CLOSTRIDIUM BUTYRICUM [Concomitant]
     Indication: CROHN'S DISEASE
     Route: 048
  3. LOPERAMIDE HCL [Concomitant]
     Indication: CROHN'S DISEASE
     Route: 048
  4. HUMIRA [Suspect]
     Dates: start: 20110309, end: 20110309
  5. HUMIRA [Suspect]
     Indication: CROHN'S DISEASE
     Route: 058
     Dates: start: 20110222, end: 20110222

REACTIONS (5)
  - URTICARIA [None]
  - CROHN'S DISEASE [None]
  - MALAISE [None]
  - DIARRHOEA [None]
  - NASOPHARYNGITIS [None]
